APPROVED DRUG PRODUCT: THEOPHYLLINE 0.04% AND DEXTROSE 5% IN PLASTIC CONTAINER
Active Ingredient: THEOPHYLLINE
Strength: 40MG/100ML
Dosage Form/Route: INJECTABLE;INJECTION
Application: N019083 | Product #001
Applicant: B BRAUN MEDICAL INC
Approved: Nov 7, 1984 | RLD: No | RS: No | Type: DISCN